FAERS Safety Report 11068982 (Version 1)
Quarter: 2015Q2

REPORT INFORMATION
  Report Type: Spontaneous
  Country: US (occurrence: US)
  Receive Date: 20150427
  Receipt Date: 20150427
  Transmission Date: 20150821
  Serious: No
  Sender: FDA-Public Use
  Company Number: US-BIOGENIDEC-2015BI054470

PATIENT
  Age: 51 Year
  Sex: Female

DRUGS (10)
  1. TECFIDERA [Suspect]
     Active Substance: DIMETHYL FUMARATE
     Indication: MULTIPLE SCLEROSIS
     Route: 048
     Dates: start: 20141110
  2. LYRICA [Concomitant]
     Active Substance: PREGABALIN
  3. LORAZEPAM. [Concomitant]
     Active Substance: LORAZEPAM
  4. OXYCODONE HCI [Concomitant]
  5. SAVELLA [Concomitant]
     Active Substance: MILNACIPRAN HYDROCHLORIDE
  6. FETZIMA [Concomitant]
     Active Substance: LEVOMILNACIPRAN HYDROCHLORIDE
  7. CLONAZEPAM. [Concomitant]
     Active Substance: CLONAZEPAM
  8. BACLOFEN. [Concomitant]
     Active Substance: BACLOFEN
  9. ONDANSETRON HCI [Concomitant]
  10. METRONIDAZOLE. [Concomitant]
     Active Substance: METRONIDAZOLE

REACTIONS (3)
  - Fatigue [Unknown]
  - Abdominal distension [Unknown]
  - Weight increased [Unknown]

NARRATIVE: CASE EVENT DATE: 201501
